FAERS Safety Report 10009873 (Version 2)
Quarter: 2014Q1

REPORT INFORMATION
  Report Type: Spontaneous
  Country: US (occurrence: US)
  Receive Date: 20140312
  Receipt Date: 20140312
  Transmission Date: 20141002
  Serious: No
  Sender: FDA-Public Use
  Company Number: US-INCYTE CORPORATION-2013IN000006

PATIENT
  Sex: 0

DRUGS (3)
  1. JAKAFI [Suspect]
     Indication: MYELOFIBROSIS
     Dosage: 20 MG, BID
     Route: 048
     Dates: start: 20120823
  2. AMBIEN [Concomitant]
  3. XANAX [Concomitant]

REACTIONS (2)
  - Back pain [Recovered/Resolved]
  - Drug administration error [Unknown]
